FAERS Safety Report 9161499 (Version 1)
Quarter: 2013Q1

REPORT INFORMATION
  Report Type: Spontaneous
  Country: CA (occurrence: CA)
  Receive Date: 20130313
  Receipt Date: 20130313
  Transmission Date: 20140127
  Serious: No
  Sender: FDA-Public Use
  Company Number: CA-B.I. PHARMACEUTICALS,INC./RIDGEFIELD-2013-CN-00362CN

PATIENT
  Age: 70 Year
  Sex: 0

DRUGS (2)
  1. TRAJENTA [Suspect]
     Dosage: 5 MG
  2. METFORMIN [Concomitant]

REACTIONS (1)
  - Pancreatitis [Recovered/Resolved]
